FAERS Safety Report 4341446-X (Version None)
Quarter: 2004Q2

REPORT INFORMATION
  Report Type: 
  Country: None (occurrence: None)
  Receive Date: 20040414
  Receipt Date: 20040402
  Transmission Date: 20050107
  Serious: Yes (Hospitalization)
  Sender: FDA-Public Use
  Company Number: 205704

PATIENT
  Age: 62 Year
  Sex: Male
  Weight: 97 kg

DRUGS (9)
  1. MABTHERA (RITUXIMAB) CONC FOR SOLUTION FOR INFUSION [Suspect]
     Indication: NON-HODGKIN'S LYMPHOMA
     Dosage: 825 MG, 1/WEEK, INTRAVENOUS
     Route: 042
     Dates: start: 20040318, end: 20040401
  2. INTERFERON (INTERFERON) [Suspect]
     Indication: NON-HODGKIN'S LYMPHOMA
     Dosage: 6/WEEK, SUBCUTANEOUS
     Route: 058
     Dates: start: 20040304, end: 20040401
  3. ZESTRIL [Concomitant]
  4. FELODIPINE [Concomitant]
  5. CARBAMAZEPINE [Concomitant]
  6. LOPERAMIDE [Concomitant]
  7. ACETAMINOPHEN [Concomitant]
  8. IBUPROFEN [Concomitant]
  9. SULFASALAZINE [Concomitant]

REACTIONS (6)
  - CHILLS [None]
  - GENERAL PHYSICAL HEALTH DETERIORATION [None]
  - PYREXIA [None]
  - RENAL FAILURE ACUTE [None]
  - TUMOUR LYSIS SYNDROME [None]
  - WEIGHT DECREASED [None]
